FAERS Safety Report 8522347-X (Version None)
Quarter: 2012Q3

REPORT INFORMATION
  Report Type: 
  Country: None (occurrence: None)
  Receive Date: 20120719
  Receipt Date: 20120717
  Transmission Date: 20120928
  Serious: Yes (Other)
  Sender: FDA-Public Use
  Company Number: US-AMGEN-USASP2011046001

PATIENT
  Age: 50 Year
  Sex: Male
  Weight: 88.526 kg

DRUGS (10)
  1. FLEXERIL [Concomitant]
     Dosage: 10 MG, BID
     Route: 048
  2. NORCO [Concomitant]
     Dosage: UNK UNK, PRN
     Route: 048
  3. OMEPRAZOLE [Concomitant]
     Dosage: 20 MG, QD
     Route: 048
  4. TRAMADOL HCL [Concomitant]
     Dosage: 50 MG, TID
     Route: 048
  5. ENBREL [Suspect]
     Dosage: 50 MG, QWK
     Route: 058
     Dates: start: 20110701, end: 20110906
  6. NORCO [Concomitant]
     Dosage: UNK, BID
     Route: 048
  7. FOLIC ACID [Concomitant]
     Dosage: 1 MG, QD
     Route: 048
  8. PLAQUENIL [Concomitant]
     Dosage: 200 MG, BID
     Route: 048
  9. METHOTREXATE [Concomitant]
     Dosage: 12.5 MG, QWK
     Route: 048
  10. ENBREL [Suspect]
     Indication: RHEUMATOID ARTHRITIS
     Dosage: 50 MG, QWK
     Route: 058
     Dates: start: 20110701

REACTIONS (5)
  - PERICARDITIS [None]
  - PARAESTHESIA [None]
  - PYREXIA [None]
  - ARTHRALGIA [None]
  - PAIN [None]
